FAERS Safety Report 4803867-8 (Version None)
Quarter: 2005Q4

REPORT INFORMATION
  Report Type: 
  Country: None (occurrence: None)
  Receive Date: 20051013
  Receipt Date: 20051003
  Transmission Date: 20060501
  Serious: Yes (Other)
  Sender: FDA-Public Use
  Company Number: SUS1-2005-00743

PATIENT
  Age: 27 Year
  Sex: Female
  Weight: 52.2 kg

DRUGS (1)
  1. ADDERALL 20 [Suspect]
     Indication: ATTENTION DEFICIT/HYPERACTIVITY DISORDER
     Dates: start: 20030101, end: 20050101

REACTIONS (2)
  - DRUG DEPENDENCE [None]
  - HALLUCINATION, VISUAL [None]
